FAERS Safety Report 17258346 (Version 1)
Quarter: 2020Q1

REPORT INFORMATION
  Report Type: Spontaneous
  Country: PL (occurrence: PL)
  Receive Date: 20200110
  Receipt Date: 20200110
  Transmission Date: 20200409
  Serious: Yes (Hospitalization)
  Sender: FDA-Public Use
  Company Number: PL-JNJFOC-20200112312

PATIENT
  Age: 64 Year
  Sex: Male

DRUGS (11)
  1. METYPRED                           /00049601/ [Concomitant]
     Active Substance: METHYLPREDNISOLONE
  2. OMNIC [Concomitant]
     Active Substance: TAMSULOSIN HYDROCHLORIDE
  3. LORISTAL [Concomitant]
     Dosage: 50 MGX1
     Route: 065
  4. MESOPRAL [Concomitant]
     Route: 065
  5. SIMPONI [Suspect]
     Active Substance: GOLIMUMAB
     Indication: ANKYLOSING SPONDYLITIS
     Route: 058
     Dates: start: 20160223, end: 201708
  6. SIMPONI [Suspect]
     Active Substance: GOLIMUMAB
     Route: 058
     Dates: start: 20190923, end: 20191219
  7. AMLOZEK [Concomitant]
     Active Substance: AMLODIPINE BESYLATE
     Route: 065
  8. ANAPRAMINE [Concomitant]
     Dosage: 550 X2
     Route: 065
  9. SIMPONI [Suspect]
     Active Substance: GOLIMUMAB
     Route: 058
     Dates: start: 20180129, end: 20190707
  10. METHOTREXATE. [Concomitant]
     Active Substance: METHOTREXATE
     Dosage: 25 MG , 20 MG
  11. TERTENSIF [Concomitant]
     Active Substance: INDAPAMIDE
     Dosage: 1 X1
     Route: 065

REACTIONS (3)
  - Demyelination [Unknown]
  - Parkinsonism [Unknown]
  - Therapy non-responder [Unknown]

NARRATIVE: CASE EVENT DATE: 2019
